FAERS Safety Report 9265168 (Version 2)
Quarter: 2013Q4

REPORT INFORMATION
  Report Type: Spontaneous
  Country: FR (occurrence: None)
  Receive Date: 20130429
  Receipt Date: 20131209
  Transmission Date: 20140711
  Serious: Yes (Hospitalization)
  Sender: FDA-Public Use
  Company Number: SYM-2013-03053

PATIENT
  Age: 7 Year
  Sex: Male

DRUGS (15)
  1. FLAGYL [Suspect]
     Indication: PYREXIA
     Dosage: 200 MG, 3 IN 1 D, INTRAVENOUS DRIP
     Route: 041
     Dates: start: 20130124, end: 20130128
  2. FLAGYL [Suspect]
     Dosage: 200 MG, 3 IN 1 D, INTRAVENOUS DRIP
     Route: 041
     Dates: start: 20130124, end: 20130128
  3. FLAGYL [Suspect]
     Dosage: 200 MG, 3 IN 1 D, INTRAVENOUS DRIP
     Route: 041
     Dates: start: 20130124, end: 20130128
  4. FLAGYL [Suspect]
     Dosage: 200 MG, 3 IN 1 D, INTRAVENOUS DRIP
     Route: 041
     Dates: start: 20130124, end: 20130128
  5. FLAGYL [Suspect]
     Dosage: 200 MG, 3 IN 1 D, INTRAVENOUS DRIP
     Route: 041
     Dates: start: 20130124, end: 20130128
  6. FLAGYL [Suspect]
     Dosage: 200 MG, 3 IN 1 D, INTRAVENOUS DRIP
     Route: 041
     Dates: start: 20130124, end: 20130128
  7. ZOVIRAX [Suspect]
     Indication: PYREXIA
     Route: 041
     Dates: start: 20130122, end: 20130129
  8. EUPANTOL [Suspect]
     Indication: PROPHYLAXIS AGAINST GASTROINTESTINAL ULCER
     Dates: start: 20130123, end: 20130131
  9. METHYLPREDNISOLONE [Suspect]
     Indication: CHEMOTHERAPY
     Dates: start: 20121215, end: 20121221
  10. DOXORUBICIN HYDROCHLORIDE [Suspect]
     Indication: BURKITT^S LYMPHOMA
     Dosage: 54 MG, EVERY CYCLE
     Dates: start: 20121223
  11. VANCOMYCIN [Suspect]
     Indication: PYREXIA
     Route: 041
     Dates: start: 20130120, end: 20130129
  12. VINCRISTINE (VINCRISTINE) (VINCRISTINE) [Concomitant]
  13. ENDOXAN (CYCLOPHOSPHAMIDE) (CYCLOPHOSPHAMIDE) [Concomitant]
  14. HYDROCORTISONE (HYDROCORTISONE) (HYDROCORTISONE) [Concomitant]
  15. METHOTREXATE (METHOTREXATE) (METHOTREXATE) [Concomitant]

REACTIONS (1)
  - Pancreatitis [None]
